FAERS Safety Report 14120831 (Version 4)
Quarter: 2021Q3

REPORT INFORMATION
  Report Type: Spontaneous
  Country: FR (occurrence: FR)
  Receive Date: 20171024
  Receipt Date: 20210916
  Transmission Date: 20211014
  Serious: Yes (Disabling, Congenital Anomaly, Other)
  Sender: FDA-Public Use
  Company Number: FR-ABBVIE-17P-056-2140040-00

PATIENT
  Sex: Female

DRUGS (2)
  1. DEPAKINE CHRONO [Suspect]
     Active Substance: VALPROATE SODIUM
     Indication: MATERNAL EXPOSURE TIMING UNSPECIFIED
     Route: 064
  2. FOLIC ACID. [Concomitant]
     Active Substance: FOLIC ACID
     Indication: PRODUCT USED FOR UNKNOWN INDICATION
     Dates: start: 199810

REACTIONS (19)
  - Learning disability [Unknown]
  - Congenital eyelid malformation [Unknown]
  - Foot deformity [Unknown]
  - Arachnodactyly [Unknown]
  - Language disorder [Unknown]
  - Ventricular septal defect [Not Recovered/Not Resolved]
  - Developmental delay [Unknown]
  - Speech disorder [Unknown]
  - Behaviour disorder [Unknown]
  - Juvenile myoclonic epilepsy [Not Recovered/Not Resolved]
  - Intellectual disability [Unknown]
  - Dysmorphism [Unknown]
  - Anomaly of external ear congenital [Unknown]
  - Walking disability [Unknown]
  - Reflexes abnormal [Not Recovered/Not Resolved]
  - Foetal exposure during pregnancy [Unknown]
  - Dysdiadochokinesis [Not Recovered/Not Resolved]
  - Intellectual disability [Not Recovered/Not Resolved]
  - Memory impairment [Unknown]
